FAERS Safety Report 8474097-6 (Version None)
Quarter: 2012Q2

REPORT INFORMATION
  Report Type: 
  Country: None (occurrence: None)
  Receive Date: 20120628
  Receipt Date: 20110519
  Transmission Date: 20120825
  Serious: Yes (Other)
  Sender: FDA-Public Use
  Company Number: US-MYLANLABS-2011S1009228

PATIENT
  Age: 26 Year
  Sex: Male

DRUGS (8)
  1. CLOZAPINE [Suspect]
     Dates: start: 20110501
  2. RISPERIDONE [Concomitant]
  3. COGENTIN [Concomitant]
  4. FERROUS SULFATE TAB [Concomitant]
  5. CLOZAPINE [Suspect]
     Dates: start: 20110501
  6. FOLIC ACID [Concomitant]
  7. CLOZAPINE [Suspect]
     Indication: SCHIZOPHRENIA
     Dates: end: 20110429
  8. CLOZAPINE [Suspect]
     Dates: end: 20110429

REACTIONS (1)
  - GRANULOCYTOPENIA [None]
